FAERS Safety Report 9778365 (Version 1)
Quarter: 2013Q4

REPORT INFORMATION
  Report Type: Spontaneous
  Country: US (occurrence: None)
  Receive Date: 20131220
  Receipt Date: 20131220
  Transmission Date: 20140711
  Serious: Yes (Other)
  Sender: FDA-Public Use
  Company Number: None

PATIENT
  Age: 51 Year
  Sex: Female
  Weight: 81.19 kg

DRUGS (1)
  1. QSYMIA [Suspect]
     Route: 048
     Dates: start: 20131014, end: 20131213

REACTIONS (1)
  - Liver function test abnormal [None]
